FAERS Safety Report 12126116 (Version 4)
Quarter: 2016Q2

REPORT INFORMATION
  Report Type: Spontaneous
  Country: AU (occurrence: AU)
  Receive Date: 20160229
  Receipt Date: 20160516
  Transmission Date: 20160815
  Serious: Yes (Death, Life-Threatening, Hospitalization, Disabling, Other)
  Sender: FDA-Public Use
  Company Number: PHHY2016AU024954

PATIENT
  Age: 4 Year
  Sex: Male

DRUGS (4)
  1. EXJADE [Suspect]
     Active Substance: DEFERASIROX
     Indication: THALASSAEMIA BETA
     Dosage: 10 MG/KG, QD
     Route: 048
  2. EXJADE [Suspect]
     Active Substance: DEFERASIROX
     Dosage: 27 MG/KG, QD (500 MG DAILY)
     Route: 048
  3. EXJADE [Suspect]
     Active Substance: DEFERASIROX
     Dosage: 31 MG/KG, QD
     Route: 048
  4. VITAMIN C [Concomitant]
     Active Substance: ASCORBIC ACID
     Indication: PRODUCT USED FOR UNKNOWN INDICATION
     Route: 065

REACTIONS (14)
  - Cardiac arrest [Unknown]
  - Vomiting [Unknown]
  - Diarrhoea [Unknown]
  - Acidosis [Unknown]
  - Oesophagitis [Unknown]
  - Malaise [Unknown]
  - Lethargy [Unknown]
  - Feeding disorder [Unknown]
  - Gastrointestinal haemorrhage [Unknown]
  - Melaena [Unknown]
  - Haemoglobin decreased [Unknown]
  - Tachycardia [Unknown]
  - Gastrointestinal disorder [Unknown]
  - Death [Fatal]

NARRATIVE: CASE EVENT DATE: 20160221
